FAERS Safety Report 11288858 (Version 1)
Quarter: 2015Q3

REPORT INFORMATION
  Report Type: Spontaneous
  Country: US (occurrence: US)
  Receive Date: 20150721
  Receipt Date: 20150721
  Transmission Date: 20151125
  Serious: No
  Sender: FDA-Public Use
  Company Number: US-UNITED THERAPEUTICS-UNT-2015-004351

PATIENT
  Age: 33 Year
  Sex: Male
  Weight: 88.44 kg

DRUGS (2)
  1. WARFARIN [Concomitant]
     Active Substance: WARFARIN
     Indication: PRODUCT USED FOR UNKNOWN INDICATION
  2. REMODULIN [Suspect]
     Active Substance: TREPROSTINIL
     Indication: PULMONARY HYPERTENSION
     Dosage: 0.012 ?G/KG/MIN, CONTINUING
     Route: 058
     Dates: start: 20150403

REACTIONS (7)
  - Vomiting [Unknown]
  - Infusion site haemorrhage [Unknown]
  - Infusion site erythema [Unknown]
  - Infusion site pain [Unknown]
  - Vertigo [Unknown]
  - Hot flush [Unknown]
  - Infusion site oedema [Unknown]

NARRATIVE: CASE EVENT DATE: 201504
